FAERS Safety Report 5855056-6 (Version None)
Quarter: 2008Q3

REPORT INFORMATION
  Report Type: 
  Country: None (occurrence: None)
  Receive Date: 20080821
  Receipt Date: 20080811
  Transmission Date: 20090109
  Serious: Yes (Other)
  Sender: FDA-Public Use
  Company Number: 08H-163-0314719-00

PATIENT
  Age: 60 Year
  Sex: Female

DRUGS (8)
  1. VANCOMYCIN HYDROCHLORIDE [Suspect]
     Indication: ANTIBIOTIC THERAPY
     Dosage: NOT REPORTED, NOT REPORTED, NOT REPORTED
  2. PIPERACILLIN/TAZOBACTAM (PIPERACILLIN SODIUM W/TAZOBACTAM) [Concomitant]
  3. ASPIRIN [Concomitant]
  4. CLOPIDOGREL [Concomitant]
  5. FUROSEMIDE (FUROSEMIDE) [Concomitant]
  6. INSULIN (INSULIN) [Concomitant]
  7. LEVOTHYROXINE SODIUM [Concomitant]
  8. LISINOPRIL [Concomitant]

REACTIONS (3)
  - ECCHYMOSIS [None]
  - LINEAR IGA DISEASE [None]
  - POST PROCEDURAL COMPLICATION [None]
